FAERS Safety Report 25648855 (Version 1)
Quarter: 2025Q3

REPORT INFORMATION
  Report Type: Report from Study
  Country: EU (occurrence: EU)
  Receive Date: 20250806
  Receipt Date: 20250806
  Transmission Date: 20251020
  Serious: Yes (Other)
  Sender: MYLAN
  Company Number: EU-MYLANLABS-2025M1064698

PATIENT
  Age: 8 Year
  Sex: Male

DRUGS (24)
  1. LEVETIRACETAM [Suspect]
     Active Substance: LEVETIRACETAM
     Indication: Severe myoclonic epilepsy of infancy
  2. LEVETIRACETAM [Suspect]
     Active Substance: LEVETIRACETAM
     Route: 065
  3. LEVETIRACETAM [Suspect]
     Active Substance: LEVETIRACETAM
     Route: 065
  4. LEVETIRACETAM [Suspect]
     Active Substance: LEVETIRACETAM
  5. STIRIPENTOL [Suspect]
     Active Substance: STIRIPENTOL
     Indication: Severe myoclonic epilepsy of infancy
  6. STIRIPENTOL [Suspect]
     Active Substance: STIRIPENTOL
     Route: 065
  7. STIRIPENTOL [Suspect]
     Active Substance: STIRIPENTOL
     Route: 065
  8. STIRIPENTOL [Suspect]
     Active Substance: STIRIPENTOL
  9. SOTICLESTAT [Suspect]
     Active Substance: SOTICLESTAT
     Indication: Severe myoclonic epilepsy of infancy
  10. SOTICLESTAT [Suspect]
     Active Substance: SOTICLESTAT
     Route: 065
  11. SOTICLESTAT [Suspect]
     Active Substance: SOTICLESTAT
     Route: 065
  12. SOTICLESTAT [Suspect]
     Active Substance: SOTICLESTAT
  13. VALPROATE [Suspect]
     Active Substance: VALPROIC ACID
     Indication: Severe myoclonic epilepsy of infancy
  14. VALPROATE [Suspect]
     Active Substance: VALPROIC ACID
     Route: 065
  15. VALPROATE [Suspect]
     Active Substance: VALPROIC ACID
     Route: 065
  16. VALPROATE [Suspect]
     Active Substance: VALPROIC ACID
  17. CLOBAZAM [Suspect]
     Active Substance: CLOBAZAM
     Indication: Severe myoclonic epilepsy of infancy
  18. CLOBAZAM [Suspect]
     Active Substance: CLOBAZAM
     Route: 065
  19. CLOBAZAM [Suspect]
     Active Substance: CLOBAZAM
     Route: 065
  20. CLOBAZAM [Suspect]
     Active Substance: CLOBAZAM
  21. FENFLURAMINE [Suspect]
     Active Substance: FENFLURAMINE
     Indication: Severe myoclonic epilepsy of infancy
  22. FENFLURAMINE [Suspect]
     Active Substance: FENFLURAMINE
     Route: 065
  23. FENFLURAMINE [Suspect]
     Active Substance: FENFLURAMINE
     Route: 065
  24. FENFLURAMINE [Suspect]
     Active Substance: FENFLURAMINE

REACTIONS (1)
  - Drug ineffective [Unknown]
